FAERS Safety Report 7030374-7 (Version None)
Quarter: 2010Q4

REPORT INFORMATION
  Report Type: 
  Country: None (occurrence: None)
  Receive Date: 20101006
  Receipt Date: 20100928
  Transmission Date: 20110411
  Serious: Yes (Other)
  Sender: FDA-Public Use
  Company Number: US-GENZYME-CLOF-1001163

PATIENT
  Sex: Female
  Weight: 64.7 kg

DRUGS (3)
  1. CLOLAR [Suspect]
     Indication: ACUTE MYELOID LEUKAEMIA
     Dosage: 25 MG/M2, QDX5 DAY 2-6
     Route: 042
     Dates: start: 20100428, end: 20100502
  2. ETOPOSIDE [Suspect]
     Indication: ACUTE MYELOID LEUKAEMIA
     Dosage: 100 MG/M2, QDX5
     Route: 042
     Dates: start: 20100427, end: 20100501
  3. MITOXANTRONE [Suspect]
     Indication: ACUTE MYELOID LEUKAEMIA
     Dosage: 8 MG/M2, QDX3
     Route: 042
     Dates: start: 20100427, end: 20100429

REACTIONS (1)
  - NEUTROPENIA [None]
